FAERS Safety Report 25471152 (Version 1)
Quarter: 2025Q2

REPORT INFORMATION
  Report Type: Spontaneous
  Country: US (occurrence: US)
  Receive Date: 20250624
  Receipt Date: 20250624
  Transmission Date: 20250716
  Serious: Yes (Other)
  Sender: ALEXION PHARMACEUTICALS
  Company Number: US-AstraZeneca-CH-00893230AP

PATIENT

DRUGS (1)
  1. SYMBICORT [Suspect]
     Active Substance: BUDESONIDE\FORMOTEROL FUMARATE DIHYDRATE
     Dosage: UNK, BID
     Route: 065

REACTIONS (6)
  - Wrong technique in device usage process [Unknown]
  - Dementia [Unknown]
  - Wheezing [Unknown]
  - Dyspnoea exertional [Unknown]
  - Lung disorder [Unknown]
  - Device use issue [Unknown]
